FAERS Safety Report 19963194 (Version 1)
Quarter: 2021Q4

REPORT INFORMATION
  Report Type: Spontaneous
  Country: US (occurrence: US)
  Receive Date: 20211015
  Receipt Date: 20211015
  Transmission Date: 20220304
  Serious: No
  Sender: FDA-Public Use
  Company Number: None

PATIENT
  Age: 34 Year
  Sex: Male
  Weight: 112.5 kg

DRUGS (1)
  1. SODIUM SULFIDE [Suspect]
     Active Substance: SODIUM SULFIDE
     Indication: Ingrowing nail

REACTIONS (1)
  - Chemical burn of skin [None]

NARRATIVE: CASE EVENT DATE: 20211013
